FAERS Safety Report 7573281-3 (Version None)
Quarter: 2011Q2

REPORT INFORMATION
  Report Type: 
  Country: None (occurrence: None)
  Receive Date: 20110627
  Receipt Date: 20110614
  Transmission Date: 20111010
  Serious: Yes (Other)
  Sender: FDA-Public Use
  Company Number: PHFR2011GB03672

PATIENT
  Age: 13 Month
  Sex: Female

DRUGS (1)
  1. TEGRETOL [Suspect]

REACTIONS (2)
  - INCORRECT DOSE ADMINISTERED [None]
  - CHOKING [None]
